FAERS Safety Report 5221837-5 (Version None)
Quarter: 2007Q1

REPORT INFORMATION
  Report Type: 
  Country: None (occurrence: None)
  Receive Date: 20070125
  Receipt Date: 20070125
  Transmission Date: 20070707
  Serious: Yes (Life-Threatening, Hospitalization, Other)
  Sender: FDA-Public Use
  Company Number: None

PATIENT
  Sex: Female
  Weight: 17.2367 kg

DRUGS (1)
  1. NEORAL [Suspect]
     Indication: NEPHROTIC SYNDROME
     Dosage: 0.3 ML EVERY 12 HOURS PO
     Route: 048
     Dates: start: 20060712, end: 20060717

REACTIONS (7)
  - DIALYSIS [None]
  - DRUG LEVEL INCREASED [None]
  - INCORRECT DOSE ADMINISTERED [None]
  - OVERDOSE [None]
  - PERITONITIS [None]
  - RENAL FAILURE [None]
  - SEPSIS [None]
